FAERS Safety Report 5213008-3 (Version None)
Quarter: 2007Q1

REPORT INFORMATION
  Report Type: 
  Country: None (occurrence: None)
  Receive Date: 20070112
  Receipt Date: 20070104
  Transmission Date: 20070707
  Serious: Yes (Life-Threatening, Hospitalization)
  Sender: FDA-Public Use
  Company Number: 2006-03234

PATIENT
  Age: 47 Year
  Sex: Male
  Weight: 65 kg

DRUGS (7)
  1. VELCADE [Suspect]
     Indication: MULTIPLE MYELOMA
     Dosage: 2.60 MG, UNK; INTRAVENOUS
     Route: 042
     Dates: start: 20061117, end: 20061120
  2. DEXAMETHASONE [Suspect]
     Indication: MULTIPLE MYELOMA
     Dosage: 40.00 MG, UNK; ORAL
     Route: 048
     Dates: start: 20061117, end: 20061121
  3. FLECAINIDE ACETATE [Concomitant]
  4. FENOFIBRATE [Concomitant]
  5. ALLOPURINOL SODIUM [Concomitant]
  6. BACTRIM [Concomitant]
  7. VALACYCLOVIR HCL [Concomitant]

REACTIONS (16)
  - ACUTE PULMONARY OEDEMA [None]
  - ACUTE RESPIRATORY DISTRESS SYNDROME [None]
  - AORTIC VALVE DISEASE [None]
  - CARDIAC FAILURE ACUTE [None]
  - CHILLS [None]
  - CONDITION AGGRAVATED [None]
  - EJECTION FRACTION DECREASED [None]
  - HYPOVOLAEMIA [None]
  - INTERSTITIAL LUNG DISEASE [None]
  - LEUKOPENIA [None]
  - LIVEDO RETICULARIS [None]
  - MITRAL VALVE INCOMPETENCE [None]
  - PERICARDIAL DISEASE [None]
  - PNEUMONIA [None]
  - PYREXIA [None]
  - RENAL FAILURE CHRONIC [None]
